FAERS Safety Report 18638539 (Version 2)
Quarter: 2020Q4

REPORT INFORMATION
  Report Type: Spontaneous
  Country: FR (occurrence: FR)
  Receive Date: 20201219
  Receipt Date: 20201224
  Transmission Date: 20210114
  Serious: Yes (Other)
  Sender: FDA-Public Use
  Company Number: FR-AUROBINDO-AUR-APL-2020-061951

PATIENT
  Age: 44 Year
  Sex: Female

DRUGS (3)
  1. KETAMINE [Concomitant]
     Active Substance: KETAMINE
     Indication: NEUROPATHY PERIPHERAL
     Dosage: UNK (TRIMESTRAL)
     Route: 065
  2. VENLAFAXINE [Concomitant]
     Active Substance: VENLAFAXINE HYDROCHLORIDE
     Indication: NEUROPATHY PERIPHERAL
     Dosage: UNK
     Route: 065
  3. GABAPENTIN. [Suspect]
     Active Substance: GABAPENTIN
     Indication: NEUROPATHY PERIPHERAL
     Dosage: 1100 MILLIGRAM, ONCE A DAY
     Route: 065

REACTIONS (4)
  - Menorrhagia [Recovered/Resolved]
  - Contusion [Recovered/Resolved]
  - Coagulopathy [Recovered/Resolved]
  - Mouth haemorrhage [Recovered/Resolved]
